FAERS Safety Report 7178370-3 (Version None)
Quarter: 2010Q4

REPORT INFORMATION
  Report Type: 
  Country: None (occurrence: None)
  Receive Date: 20101220
  Receipt Date: 20101208
  Transmission Date: 20110411
  Serious: Yes (Hospitalization)
  Sender: FDA-Public Use
  Company Number: DE-ELI_LILLY_AND_COMPANY-DE201012001888

PATIENT
  Age: 27 Year
  Sex: Male

DRUGS (1)
  1. ZYPADHERA [Suspect]
     Indication: SCHIZOPHRENIA, PARANOID TYPE
     Dosage: 300 MG, EVERY 2 WEEKS
     Route: 030
     Dates: start: 20100119, end: 20101126

REACTIONS (2)
  - INJECTION SITE ABSCESS [None]
  - NAUSEA [None]
